FAERS Safety Report 5178894-4 (Version None)
Quarter: 2006Q4

REPORT INFORMATION
  Report Type: 
  Country: None (occurrence: None)
  Receive Date: 20061208
  Receipt Date: 20061123
  Transmission Date: 20070319
  Serious: Yes (Death)
  Sender: FDA-Public Use
  Company Number: 15260

PATIENT
  Age: 56 Year
  Sex: Female

DRUGS (4)
  1. FLUOROURACIL [Suspect]
     Dates: start: 20061004, end: 20061018
  2. FOLINIC ACID [Suspect]
     Dates: start: 20061004, end: 20061018
  3. IRINOTECAN HCL [Suspect]
     Dates: start: 20061004, end: 20061018
  4. BMS582664 [Suspect]
     Indication: COLORECTAL CANCER METASTATIC
     Dosage: 180 MG QD PO
     Route: 048
     Dates: start: 20061005, end: 20061024

REACTIONS (15)
  - ASTHENIA [None]
  - BLOOD PRESSURE DECREASED [None]
  - BODY TEMPERATURE DECREASED [None]
  - BREATH SOUNDS ABNORMAL [None]
  - CACHEXIA [None]
  - DECREASED APPETITE [None]
  - DEHYDRATION [None]
  - DISEASE PROGRESSION [None]
  - HEART RATE INCREASED [None]
  - LETHARGY [None]
  - NAUSEA [None]
  - NEUTROPHIL COUNT DECREASED [None]
  - RESPIRATORY RATE INCREASED [None]
  - URINE OUTPUT DECREASED [None]
  - VOMITING [None]
